FAERS Safety Report 13240954 (Version 5)
Quarter: 2017Q3

REPORT INFORMATION
  Report Type: Report from Study
  Country: US (occurrence: US)
  Receive Date: 20170216
  Receipt Date: 20170706
  Transmission Date: 20171127
  Serious: Yes (Hospitalization)
  Sender: FDA-Public Use
  Company Number: US-BAYER-2017-012021

PATIENT
  Age: 34 Year
  Sex: Female
  Weight: 58.96 kg

DRUGS (5)
  1. VENTAVIS [Suspect]
     Active Substance: ILOPROST
     Indication: PULMONARY ARTERIAL HYPERTENSION
     Dosage: 2.5 MCG, 6-9 X/DAY
     Route: 055
     Dates: start: 20150522
  2. FLOLAN [Concomitant]
     Active Substance: EPOPROSTENOL SODIUM
  3. VENTAVIS [Suspect]
     Active Substance: ILOPROST
     Indication: PULMONARY ARTERIAL HYPERTENSION
     Dosage: 5 MCG, 6-9X PER DAY
     Route: 055
  4. ADEMPAS [Suspect]
     Active Substance: RIOCIGUAT
     Indication: PRODUCT USED FOR UNKNOWN INDICATION
     Dosage: UNK
     Route: 065
  5. LETAIRIS [Concomitant]
     Active Substance: AMBRISENTAN
     Dosage: UNK

REACTIONS (12)
  - Fluid overload [None]
  - Mitral valve replacement [None]
  - Laboratory test abnormal [None]
  - Dyspnoea [None]
  - Gastrooesophageal reflux disease [None]
  - Vomiting [Unknown]
  - Nausea [Unknown]
  - Lung transplant [None]
  - Pulmonary function test decreased [None]
  - Cardiac failure [None]
  - Oedema [None]
  - Cardiac disorder [None]
